FAERS Safety Report 16836700 (Version 1)
Quarter: 2019Q3

REPORT INFORMATION
  Report Type: Other
  Country: GB (occurrence: GB)
  Receive Date: 20190922
  Receipt Date: 20190922
  Transmission Date: 20191005
  Serious: Yes (Other)
  Sender: FDA-Public Use
  Company Number: GB-ASTELLAS-2019US036905

PATIENT
  Age: 72 Year
  Sex: Female

DRUGS (11)
  1. TOLTERODINE L-TARTRATE [Concomitant]
     Active Substance: TOLTERODINE TARTRATE
     Indication: PRODUCT USED FOR UNKNOWN INDICATION
     Dosage: 1 DF, ONCE DAILY (INSTEAD OF OXYBUTYNIN)
     Route: 065
     Dates: start: 20190708
  2. RIVAROXABAN [Suspect]
     Active Substance: RIVAROXABAN
     Indication: ATRIAL FIBRILLATION
     Dosage: 1 DF, ONCE DAILY WITH FOOD
     Route: 065
     Dates: start: 20181115
  3. PARACETAMOL [Concomitant]
     Active Substance: ACETAMINOPHEN
     Indication: PRODUCT USED FOR UNKNOWN INDICATION
     Dosage: UNK UNK, EVERY 6 HOURS (TAKE 1 OR 2 4 TIMES/DAY)
     Route: 065
     Dates: start: 20181115
  4. SOTALOL. [Concomitant]
     Active Substance: SOTALOL
     Indication: PRODUCT USED FOR UNKNOWN INDICATION
     Dosage: 1 DF, ONCE DAILY (TAKE ONE DAILY IN AM TEVA BRAND ONLY)
     Route: 065
     Dates: start: 20181115
  5. GABAPENTIN. [Concomitant]
     Active Substance: GABAPENTIN
     Indication: PRODUCT USED FOR UNKNOWN INDICATION
     Dosage: 4 DF, TWICE DAILY (IN THE MORNING AND IN THE EVENING)
     Route: 065
     Dates: start: 20181115
  6. OMEPRAZOLE. [Concomitant]
     Active Substance: OMEPRAZOLE
     Indication: PRODUCT USED FOR UNKNOWN INDICATION
     Route: 065
     Dates: start: 20181115
  7. KETOPROFEN. [Concomitant]
     Active Substance: KETOPROFEN
     Indication: PRODUCT USED FOR UNKNOWN INDICATION
     Route: 065
     Dates: start: 20190821
  8. MIRABEGRON [Suspect]
     Active Substance: MIRABEGRON
     Indication: PRODUCT USED FOR UNKNOWN INDICATION
     Route: 065
     Dates: start: 20190805
  9. CODEINE PHOSPHATE [Concomitant]
     Active Substance: CODEINE PHOSPHATE
     Indication: PRODUCT USED FOR UNKNOWN INDICATION
     Dosage: UNK UNK, EVERY 6 HOURS (TAKE ONE OR 2 4 TIMES/DAY)
     Route: 065
     Dates: start: 20181115
  10. EVOREL [Concomitant]
     Indication: PRODUCT USED FOR UNKNOWN INDICATION
     Route: 065
     Dates: start: 20181115
  11. OXYBUTYNIN. [Concomitant]
     Active Substance: OXYBUTYNIN CHLORIDE
     Indication: BLADDER DISORDER
     Route: 065
     Dates: start: 20190517, end: 20190708

REACTIONS (3)
  - Drug interaction [Unknown]
  - Haemoptysis [Recovering/Resolving]
  - Petechiae [Unknown]
